FAERS Safety Report 6315945-5 (Version None)
Quarter: 2009Q3

REPORT INFORMATION
  Report Type: 
  Country: None (occurrence: None)
  Receive Date: 20090820
  Receipt Date: 20090520
  Transmission Date: 20100115
  Serious: No
  Sender: FDA-Public Use
  Company Number: US-KINGPHARMUSA00001-K200900615

PATIENT
  Sex: Female

DRUGS (5)
  1. CYTOMEL [Suspect]
     Indication: HYPOTHYROIDISM
     Dosage: 5 MCG, BID
     Route: 048
     Dates: start: 20090301
  2. CYTOMEL [Suspect]
     Dosage: 2.5 MCG, BID
  3. CYTOMEL [Suspect]
     Dosage: 1.25 MCG, BID
  4. CYTOMEL [Suspect]
     Dosage: 2.5 MCG, BID
  5. SYNTHROID [Concomitant]
     Dosage: 88 MCG, QD
     Route: 048

REACTIONS (2)
  - MEMORY IMPAIRMENT [None]
  - PALPITATIONS [None]
